FAERS Safety Report 9391204 (Version 1)
Quarter: 2013Q3

REPORT INFORMATION
  Report Type: Spontaneous
  Country: CO (occurrence: CO)
  Receive Date: 20130709
  Receipt Date: 20130709
  Transmission Date: 20140515
  Serious: Yes (Life-Threatening, Hospitalization)
  Sender: FDA-Public Use
  Company Number: CO-SANOFI-AVENTIS-2013SA068057

PATIENT
  Age: 76 Year
  Sex: Female

DRUGS (8)
  1. DOCETAXEL [Suspect]
     Indication: PRODUCT USED FOR UNKNOWN INDICATION
     Route: 042
     Dates: start: 20130206, end: 20130206
  2. CARBOPLATIN [Suspect]
     Indication: PRODUCT USED FOR UNKNOWN INDICATION
     Route: 042
     Dates: start: 20130206, end: 20130206
  3. TRASTUZUMAB [Concomitant]
     Indication: BREAST CANCER
     Dosage: FORM- SOLUTION
     Route: 058
     Dates: start: 20130206
  4. METFORMIN [Concomitant]
     Dosage: DOSE:600 MILLIGRAM(S)/MILLILITRE
     Dates: start: 201212
  5. AMLODIPINE [Concomitant]
     Dates: start: 1998
  6. AMLODIPINE [Concomitant]
     Dates: start: 2008
  7. LOVASTATIN [Concomitant]
     Dates: start: 2008
  8. RANITIDINE [Concomitant]

REACTIONS (1)
  - Hyponatraemia [Recovered/Resolved]
